FAERS Safety Report 7579582-7 (Version None)
Quarter: 2011Q2

REPORT INFORMATION
  Report Type: 
  Country: None (occurrence: None)
  Receive Date: 20110629
  Receipt Date: 20110621
  Transmission Date: 20111010
  Serious: Yes (Hospitalization, Other)
  Sender: FDA-Public Use
  Company Number: CO-ROCHE-777085

PATIENT
  Sex: Female

DRUGS (2)
  1. CELLCEPT [Suspect]
     Indication: SYSTEMIC LUPUS ERYTHEMATOSUS
     Route: 048
     Dates: start: 20080925
  2. CELLCEPT [Suspect]
     Route: 048
     Dates: start: 20110401, end: 20110501

REACTIONS (6)
  - PROTEINURIA [None]
  - GASTRITIS [None]
  - PANCREATITIS [None]
  - ABDOMINAL PAIN [None]
  - NAUSEA [None]
  - OEDEMA [None]
